FAERS Safety Report 9330017 (Version 1)
Quarter: 2013Q2

REPORT INFORMATION
  Report Type: Spontaneous
  Country: FR (occurrence: FR)
  Receive Date: 20130604
  Receipt Date: 20130604
  Transmission Date: 20140414
  Serious: Yes (Hospitalization)
  Sender: FDA-Public Use
  Company Number: FR-B.I. PHARMACEUTICALS,INC./RIDGEFIELD-2013-FF-01531FF

PATIENT
  Age: 84 Year
  Sex: Female

DRUGS (2)
  1. PRADAXA [Suspect]
     Dosage: 220 MG
     Route: 048
     Dates: start: 20130123, end: 20130414
  2. ASPEGIC NOURRISSONS [Suspect]
     Dosage: 100 MG
     Route: 048
     Dates: end: 20130414

REACTIONS (2)
  - Peritoneal haemorrhage [Recovered/Resolved]
  - Condition aggravated [Recovered/Resolved]
